FAERS Safety Report 6246126-1 (Version None)
Quarter: 2009Q2

REPORT INFORMATION
  Report Type: 
  Country: None (occurrence: None)
  Receive Date: 20090626
  Receipt Date: 20090521
  Transmission Date: 20091009
  Serious: No
  Sender: FDA-Public Use
  Company Number: A0775175A

PATIENT
  Age: 52 Year
  Sex: Female
  Weight: 60.5 kg

DRUGS (2)
  1. SUMATRIPTAN SUCCINATE [Suspect]
     Indication: MIGRAINE
     Route: 048
     Dates: start: 20090315, end: 20090316
  2. NORTRIPTYLINE HCL [Concomitant]
     Indication: MIGRAINE
     Dosage: 10MG PER DAY

REACTIONS (2)
  - DRUG INEFFECTIVE [None]
  - PRODUCT QUALITY ISSUE [None]
